FAERS Safety Report 18150436 (Version 1)
Quarter: 2020Q3

REPORT INFORMATION
  Report Type: Spontaneous
  Country: US (occurrence: US)
  Receive Date: 20200814
  Receipt Date: 20200814
  Transmission Date: 20201103
  Serious: No
  Sender: FDA-Public Use
  Company Number: US-LNK INTERNATIONAL, INC.-2088613

PATIENT
  Age: 90 Year
  Sex: Female

DRUGS (3)
  1. DEPAKENE [Concomitant]
     Active Substance: VALPROIC ACID
  2. LOVASTATIN. [Concomitant]
     Active Substance: LOVASTATIN
  3. NAPROXEN SODIUM 220MG FILM COATED BLUE CAPLET [Suspect]
     Active Substance: NAPROXEN SODIUM
     Indication: SCIATICA

REACTIONS (2)
  - Diarrhoea [None]
  - Peripheral swelling [None]
